FAERS Safety Report 10176909 (Version 1)
Quarter: 2014Q2

REPORT INFORMATION
  Report Type: Spontaneous
  Country: IT (occurrence: IT)
  Receive Date: 20140516
  Receipt Date: 20140516
  Transmission Date: 20141212
  Serious: Yes (Hospitalization)
  Sender: FDA-Public Use
  Company Number: IT-PFIZER INC-2014134190

PATIENT
  Age: 14 Year
  Sex: Female

DRUGS (3)
  1. LORAZEPAM [Suspect]
     Dosage: 5 MG, TOTAL (4-5 TABLETS 1 MG)
     Route: 048
     Dates: start: 20140423, end: 20140423
  2. VENLAFAXINE HCL [Suspect]
     Dosage: 600 MG, TOTAL (3-4 TABLETS 150 MG)
     Route: 048
     Dates: start: 20140423, end: 20140423
  3. ESTAZOLAM [Suspect]
     Dosage: 24 MG, TOTAL (10-12 TABLETS 2 MG)
     Route: 048
     Dates: start: 20140423, end: 20140423

REACTIONS (3)
  - Sopor [Recovering/Resolving]
  - Hypoglycaemia [Recovering/Resolving]
  - Drug abuse [Recovering/Resolving]
